FAERS Safety Report 5526155-3 (Version None)
Quarter: 2007Q4

REPORT INFORMATION
  Report Type: 
  Country: None (occurrence: None)
  Receive Date: 20071120
  Receipt Date: 20071106
  Transmission Date: 20080405
  Serious: Yes (Other)
  Sender: FDA-Public Use
  Company Number: CHNY2007DE03692

PATIENT
  Sex: Female

DRUGS (1)
  1. HYOSCINE HBR HYT [Suspect]
     Indication: MOTION SICKNESS
     Dosage: TRANSDERMAL
     Route: 062
     Dates: start: 20071012, end: 20071013

REACTIONS (12)
  - CONFUSIONAL STATE [None]
  - COORDINATION ABNORMAL [None]
  - DISORIENTATION [None]
  - DISTURBANCE IN ATTENTION [None]
  - DIZZINESS [None]
  - HALLUCINATION, VISUAL [None]
  - HYPERTENSION [None]
  - MEMORY IMPAIRMENT [None]
  - RESTLESSNESS [None]
  - SENSATION OF HEAVINESS [None]
  - SPEECH DISORDER [None]
  - TRANSIENT ISCHAEMIC ATTACK [None]
